FAERS Safety Report 4963921-7 (Version None)
Quarter: 2006Q1

REPORT INFORMATION
  Report Type: 
  Country: None (occurrence: None)
  Receive Date: 20060330
  Receipt Date: 20060317
  Transmission Date: 20060701
  Serious: Yes (Hospitalization)
  Sender: FDA-Public Use
  Company Number: 06-000244

PATIENT
  Age: 57 Year
  Sex: Female

DRUGS (1)
  1. PYRIDIUM(PHENAZOPYRIDINE HYDROCHLORIDE) TABLET, 100MG [Suspect]

REACTIONS (1)
  - SULPHAEMOGLOBINAEMIA [None]
